FAERS Safety Report 10551407 (Version 4)
Quarter: 2015Q1

REPORT INFORMATION
  Report Type: Spontaneous
  Country: JP (occurrence: JP)
  Receive Date: 20141029
  Receipt Date: 20150211
  Transmission Date: 20150720
  Serious: Yes (Death, Other)
  Sender: FDA-Public Use
  Company Number: JP-JNJFOC-20141017267

PATIENT
  Age: 77 Year
  Sex: Female

DRUGS (17)
  1. REMINYL [Suspect]
     Active Substance: GALANTAMINE
     Indication: DEMENTIA ALZHEIMER^S TYPE
     Route: 048
     Dates: start: 20130515, end: 20141023
  2. MIRAPEX [Concomitant]
     Active Substance: PRAMIPEXOLE DIHYDROCHLORIDE
     Indication: PARKINSON^S DISEASE
     Route: 048
     Dates: start: 20130308, end: 20130514
  3. LEVODOPA - CARBIDOPA [Concomitant]
     Indication: PARKINSON^S DISEASE
     Route: 048
     Dates: start: 20130515, end: 20130709
  4. REMINYL [Suspect]
     Active Substance: GALANTAMINE
     Indication: DEMENTIA ALZHEIMER^S TYPE
     Route: 048
     Dates: start: 20130320, end: 20130407
  5. LEVODOPA - CARBIDOPA [Concomitant]
     Indication: PARKINSON^S DISEASE
     Route: 048
     Dates: start: 20130710, end: 20141023
  6. COMTAN [Concomitant]
     Active Substance: ENTACAPONE
     Indication: PARKINSON^S DISEASE
     Route: 048
     Dates: start: 20130625, end: 20141023
  7. FP [Concomitant]
     Active Substance: SELEGILINE HYDROCHLORIDE
     Indication: PARKINSON^S DISEASE
     Route: 048
     Dates: start: 20130625, end: 20141023
  8. TRERIEF [Concomitant]
     Active Substance: ZONISAMIDE
     Indication: PARKINSON^S DISEASE
     Route: 048
     Dates: start: 20131030, end: 20141023
  9. MYSLEE [Concomitant]
     Active Substance: ZOLPIDEM TARTRATE
     Indication: INITIAL INSOMNIA
     Route: 048
     Dates: start: 20140801, end: 20141023
  10. LEVODOPA - CARBIDOPA [Concomitant]
     Indication: PARKINSON^S DISEASE
     Route: 048
     Dates: start: 20130308, end: 20130514
  11. MEMANTINE HYDROCHLORIDE [Concomitant]
     Active Substance: MEMANTINE HYDROCHLORIDE
     Indication: DEMENTIA ALZHEIMER^S TYPE
     Route: 048
     Dates: start: 20130320, end: 20130328
  12. MEMANTINE HYDROCHLORIDE [Concomitant]
     Active Substance: MEMANTINE HYDROCHLORIDE
     Indication: DEMENTIA ALZHEIMER^S TYPE
     Route: 048
     Dates: start: 20130403, end: 20130407
  13. MICARDIS [Concomitant]
     Active Substance: TELMISARTAN
     Indication: HYPERTENSION
     Route: 048
     Dates: start: 20130625, end: 20141023
  14. MEMANTINE HYDROCHLORIDE [Concomitant]
     Active Substance: MEMANTINE HYDROCHLORIDE
     Indication: DEMENTIA ALZHEIMER^S TYPE
     Route: 048
     Dates: start: 20130329, end: 20130403
  15. MEMANTINE HYDROCHLORIDE [Concomitant]
     Active Substance: MEMANTINE HYDROCHLORIDE
     Indication: DEMENTIA ALZHEIMER^S TYPE
     Route: 048
     Dates: start: 20130408, end: 20141023
  16. REMINYL [Suspect]
     Active Substance: GALANTAMINE
     Indication: DEMENTIA ALZHEIMER^S TYPE
     Route: 048
     Dates: start: 20130408, end: 20130514
  17. LEVODOPA - CARBIDOPA [Concomitant]
     Indication: PARKINSON^S DISEASE
     Route: 048
     Dates: start: 20130302, end: 20130307

REACTIONS (6)
  - Hallucination [Not Recovered/Not Resolved]
  - Memory impairment [Not Recovered/Not Resolved]
  - Anxiety [Recovering/Resolving]
  - Dyskinesia [Not Recovered/Not Resolved]
  - Delusion [Not Recovered/Not Resolved]
  - Completed suicide [Fatal]

NARRATIVE: CASE EVENT DATE: 20130625
